FAERS Safety Report 23659236 (Version 1)
Quarter: 2024Q1

REPORT INFORMATION
  Report Type: Spontaneous
  Country: US (occurrence: None)
  Receive Date: 20240321
  Receipt Date: 20240321
  Transmission Date: 20240410
  Serious: Yes (Other)
  Sender: FDA-Public Use
  Company Number: None

PATIENT
  Sex: Male

DRUGS (1)
  1. TEZSPIRE [Suspect]
     Active Substance: TEZEPELUMAB-EKKO
     Dosage: FREQUENCY : MONTHLY;?
     Route: 058
     Dates: start: 20240201

REACTIONS (3)
  - Asthma [None]
  - Quality of life decreased [None]
  - Food allergy [None]
